FAERS Safety Report 6617680-2 (Version None)
Quarter: 2010Q1

REPORT INFORMATION
  Report Type: 
  Country: None (occurrence: None)
  Receive Date: 20100308
  Receipt Date: 20100216
  Transmission Date: 20100710
  Serious: Yes (Hospitalization)
  Sender: FDA-Public Use
  Company Number: NL-MEDIMMUNE-MEDI-0010651

PATIENT
  Sex: Male
  Weight: 4.7 kg

DRUGS (1)
  1. SYNAGIS [Suspect]
     Route: 030
     Dates: start: 20091001

REACTIONS (5)
  - ATELECTASIS [None]
  - COUGH [None]
  - PNEUMONIA [None]
  - PYREXIA [None]
  - WHEEZING [None]
